FAERS Safety Report 13126121 (Version 1)
Quarter: 2017Q1

REPORT INFORMATION
  Report Type: Other
  Country: MK (occurrence: MK)
  Receive Date: 20170118
  Receipt Date: 20170118
  Transmission Date: 20170428
  Serious: Yes (Other)
  Sender: FDA-Public Use
  Company Number: MK-LUPIN PHARMACEUTICALS INC.-2016-02072

PATIENT
  Age: 56 Year
  Sex: Female

DRUGS (2)
  1. DIAZEPAM. [Concomitant]
     Active Substance: DIAZEPAM
     Indication: BACK PAIN
     Route: 065
  2. TRAMADOL 100 MG [Suspect]
     Active Substance: TRAMADOL
     Indication: BACK PAIN
     Route: 065

REACTIONS (1)
  - Generalised tonic-clonic seizure [Recovered/Resolved]
